FAERS Safety Report 9200137 (Version 1)
Quarter: 2013Q1

REPORT INFORMATION
  Report Type: Spontaneous
  Country: US (occurrence: US)
  Receive Date: 20130329
  Receipt Date: 20130329
  Transmission Date: 20140127
  Serious: Yes (Other)
  Sender: FDA-Public Use
  Company Number: US-JNJFOC-20130316733

PATIENT
  Age: 61 Year
  Sex: Female

DRUGS (1)
  1. MOTRIN [Suspect]
     Indication: ARTHRITIS
     Route: 065

REACTIONS (2)
  - Anaemia [Unknown]
  - Migraine [Unknown]
